FAERS Safety Report 21962646 (Version 7)
Quarter: 2023Q4

REPORT INFORMATION
  Report Type: Spontaneous
  Country: PK (occurrence: PK)
  Receive Date: 20230207
  Receipt Date: 20231121
  Transmission Date: 20240109
  Serious: Yes (Other)
  Sender: FDA-Public Use
  Company Number: PK-PFIZER INC-PV202200119191

PATIENT
  Age: 21 Year
  Sex: Male
  Weight: 65 kg

DRUGS (12)
  1. ENBREL [Suspect]
     Active Substance: ETANERCEPT
     Indication: Psoriatic arthropathy
     Dosage: 50 MG, WEEKLY (FOR 2 MONTHS)
     Route: 058
     Dates: start: 20221107
  2. ENBREL [Suspect]
     Active Substance: ETANERCEPT
     Indication: Spondylitis
     Dosage: 50 MG, EVERY 10 DAYS
     Route: 058
     Dates: start: 20230330
  3. ENBREL [Suspect]
     Active Substance: ETANERCEPT
     Dosage: 50 MG, EVERY TWO WEEKS
     Route: 058
  4. ENBREL [Suspect]
     Active Substance: ETANERCEPT
     Dosage: 50 MG, EVERY 15 DAYS
     Route: 065
  5. Risek [Concomitant]
     Indication: Hyperchlorhydria
     Dosage: 40 MG (1+0+0+0, BEFORE MEAL, 1 CAP IN MORNING, BEFORE MEAL, BREAKFAST)
  6. Risek [Concomitant]
     Dosage: 20 MG (1+0+0+0, BEFORE MEAL 1 TAB IN THE MORNING AFTER MEAL (AS REPORTED) PER NEED)
  7. PREDNISOLONE [Concomitant]
     Active Substance: PREDNISOLONE
     Indication: Product used for unknown indication
     Dosage: 5 MG
  8. FOLIC ACID [Concomitant]
     Active Substance: FOLIC ACID
     Indication: Product used for unknown indication
     Dosage: 5 MG, 1X/DAY (1+0+0+0, 1 TAB IN MORNING AFTER MEAL)
  9. XOBIX [Concomitant]
     Indication: Product used for unknown indication
     Dosage: 15 MG, 1X/DAY (0+0+0+1, 1 TAB AT NIGHT AFTER MEAL)
  10. DICLOFENAC DIETHYLAMINE [Concomitant]
     Active Substance: DICLOFENAC DIETHYLAMINE
     Indication: Product used for unknown indication
     Dosage: UNK, 2X/DAY APPLY LOCALLY
  11. Sunny d [Concomitant]
     Indication: Product used for unknown indication
     Dosage: 1 X CAPSULES, ONCE IN TWO MONTHS, AFTER MEAL
  12. ALLOPURINOL [Concomitant]
     Active Substance: ALLOPURINOL
     Indication: Product used for unknown indication
     Dosage: 1X TABLETS, 1X/DAY

REACTIONS (14)
  - Weight decreased [Unknown]
  - Musculoskeletal stiffness [Unknown]
  - Pain [Unknown]
  - Joint range of motion decreased [Unknown]
  - Synovitis [Unknown]
  - Blood pressure increased [Unknown]
  - White blood cell count decreased [Unknown]
  - Blood creatine decreased [Unknown]
  - Dysuria [Recovered/Resolved]
  - Skin exfoliation [Unknown]
  - Rash [Unknown]
  - Blood uric acid increased [Unknown]
  - Arthralgia [Unknown]
  - Off label use [Unknown]

NARRATIVE: CASE EVENT DATE: 20230130
